FAERS Safety Report 9558583 (Version 7)
Quarter: 2015Q3

REPORT INFORMATION
  Report Type: Report from Study
  Country: US (occurrence: US)
  Receive Date: 20130926
  Receipt Date: 20150828
  Transmission Date: 20151125
  Serious: Yes (Hospitalization)
  Sender: FDA-Public Use
  Company Number: US-ROCHE-1276990

PATIENT
  Age: 58 Year
  Sex: Female

DRUGS (62)
  1. TOCILIZUMAB [Suspect]
     Active Substance: TOCILIZUMAB
     Indication: RHEUMATOID ARTHRITIS
     Dosage: DATE OF THE LAST DOSE PRIOR TO AE ONSET : 16/JUL/2013.?DATE OF LAST DOSE PRIOR TO OCCURANCE OF DEHYD
     Route: 042
     Dates: start: 20120228
  2. LISINOPRIL. [Suspect]
     Active Substance: LISINOPRIL
     Route: 048
     Dates: start: 20150721
  3. PREDNISONE. [Concomitant]
     Active Substance: PREDNISONE
     Route: 048
     Dates: start: 20120718, end: 20120814
  4. PREDNISONE. [Concomitant]
     Active Substance: PREDNISONE
     Dosage: SINGLE DOSE
     Route: 048
     Dates: start: 20140802, end: 20140802
  5. PREDNISONE. [Concomitant]
     Active Substance: PREDNISONE
     Route: 048
     Dates: start: 20140804
  6. PREDNISONE. [Concomitant]
     Active Substance: PREDNISONE
     Dosage: SINGLE DOSE
     Route: 048
     Dates: start: 20150724, end: 20150724
  7. OMEPRAZOLE. [Concomitant]
     Active Substance: OMEPRAZOLE
     Indication: GASTROOESOPHAGEAL REFLUX DISEASE
     Route: 048
     Dates: start: 20111102
  8. FOLIC ACID. [Concomitant]
     Active Substance: FOLIC ACID
     Indication: PROPHYLAXIS
     Route: 048
     Dates: start: 20111102
  9. HYDROCORTISONE. [Concomitant]
     Active Substance: HYDROCORTISONE
     Indication: SEBORRHOEIC DERMATITIS
     Route: 061
     Dates: start: 20130306
  10. ZITHROMAX [Concomitant]
     Active Substance: AZITHROMYCIN DIHYDRATE
     Indication: UPPER RESPIRATORY TRACT INFECTION
     Route: 048
     Dates: start: 20130204, end: 20130210
  11. SUMADAN [Concomitant]
     Active Substance: SULFACETAMIDE SODIUM\SULFUR
     Indication: SEBORRHOEIC DERMATITIS
     Dosage: DOSE : 1 OTHER.
     Route: 061
     Dates: start: 20130426, end: 20130612
  12. ELIDEL [Concomitant]
     Active Substance: PIMECROLIMUS
     Route: 061
     Dates: start: 20130426, end: 20130612
  13. BYDUREON [Concomitant]
     Active Substance: EXENATIDE
     Route: 048
     Dates: start: 20150324
  14. PREDNISONE. [Concomitant]
     Active Substance: PREDNISONE
     Route: 048
     Dates: start: 20130608, end: 20140627
  15. PREDNISONE. [Concomitant]
     Active Substance: PREDNISONE
     Dosage: SINGLE DOSE
     Route: 048
     Dates: start: 20140729, end: 20140729
  16. KETOCONAZOLE CREAM [Concomitant]
     Active Substance: KETOCONAZOLE
     Route: 061
     Dates: start: 20120814, end: 20120904
  17. NAPROSYN [Concomitant]
     Active Substance: NAPROXEN
     Indication: LIGAMENT SPRAIN
     Route: 048
     Dates: start: 20130902
  18. MAGNESIUM OXIDE. [Concomitant]
     Active Substance: MAGNESIUM OXIDE
     Route: 048
     Dates: start: 20140107, end: 20140107
  19. MAGNESIUM OXIDE. [Concomitant]
     Active Substance: MAGNESIUM OXIDE
     Route: 048
     Dates: start: 20140325
  20. ASPIRIN. [Concomitant]
     Active Substance: ASPIRIN
     Route: 048
     Dates: start: 20140107, end: 20140107
  21. FLUARIX VACCINE [Concomitant]
     Route: 030
     Dates: start: 20141008, end: 20141008
  22. PREDNISONE. [Concomitant]
     Active Substance: PREDNISONE
     Route: 048
     Dates: start: 20130225, end: 20130304
  23. PREDNISONE. [Concomitant]
     Active Substance: PREDNISONE
     Dosage: SINGLE DOSE
     Route: 048
     Dates: start: 20140728, end: 20140728
  24. PREDNISONE. [Concomitant]
     Active Substance: PREDNISONE
     Dosage: SINGLE DOSE
     Route: 048
     Dates: start: 20150728, end: 20150728
  25. PREDNISONE. [Concomitant]
     Active Substance: PREDNISONE
     Dosage: SINGLE DOSE
     Route: 048
     Dates: start: 20150729, end: 20150729
  26. METFORMIN [Concomitant]
     Active Substance: METFORMIN HYDROCHLORIDE
     Indication: TYPE 2 DIABETES MELLITUS
     Route: 048
     Dates: start: 20111102
  27. HYDROCHLOROTHIAZIDE. [Concomitant]
     Active Substance: HYDROCHLOROTHIAZIDE
     Route: 048
     Dates: start: 20150721
  28. ALKA-SELTZER COLD AND SINUS [Concomitant]
     Indication: UPPER RESPIRATORY TRACT INFECTION
     Route: 048
     Dates: start: 20120316, end: 20120319
  29. IBUPROFEN. [Concomitant]
     Active Substance: IBUPROFEN
     Route: 048
     Dates: start: 20120201, end: 20120521
  30. PREDNISONE. [Concomitant]
     Active Substance: PREDNISONE
     Dosage: SINGLE DOSE
     Route: 048
     Dates: start: 20140731, end: 20140731
  31. MIRTAZAPINE. [Concomitant]
     Active Substance: MIRTAZAPINE
     Indication: DEPRESSION
     Route: 048
     Dates: start: 20130418, end: 20150324
  32. LEVAQUIN [Concomitant]
     Active Substance: LEVOFLOXACIN
     Indication: PYELONEPHRITIS
     Route: 042
     Dates: start: 20120903, end: 20120911
  33. MORPHINE [Concomitant]
     Active Substance: MORPHINE
     Route: 042
     Dates: start: 20140109, end: 20140109
  34. PREDNISONE. [Concomitant]
     Active Substance: PREDNISONE
     Dosage: SINGLE DOSE
     Route: 048
     Dates: start: 20150725, end: 20150725
  35. MIRTAZAPINE. [Concomitant]
     Active Substance: MIRTAZAPINE
     Route: 048
     Dates: start: 20120623, end: 20130417
  36. HYDROCORTISONE. [Concomitant]
     Active Substance: HYDROCORTISONE
     Indication: DERMATITIS CONTACT
     Route: 061
     Dates: start: 20120517, end: 20120710
  37. AMBIEN [Concomitant]
     Active Substance: ZOLPIDEM TARTRATE
     Route: 048
     Dates: start: 20150721
  38. KLONOPIN [Concomitant]
     Active Substance: CLONAZEPAM
     Route: 048
     Dates: start: 20120727, end: 20120901
  39. PREDNISONE. [Concomitant]
     Active Substance: PREDNISONE
     Route: 048
     Dates: start: 20130605, end: 20130607
  40. PREDNISONE. [Concomitant]
     Active Substance: PREDNISONE
     Dosage: SINGLE DOSE
     Route: 048
     Dates: start: 20140730, end: 20140730
  41. PREDNISONE. [Concomitant]
     Active Substance: PREDNISONE
     Dosage: SINGLE DOSE
     Route: 048
     Dates: start: 20150723, end: 20150727
  42. ENALAPRIL MALEATE. [Concomitant]
     Active Substance: ENALAPRIL MALEATE
     Indication: HYPERTENSION
     Route: 048
     Dates: start: 20111102
  43. HYDROCHLOROTHIAZIDE. [Concomitant]
     Active Substance: HYDROCHLOROTHIAZIDE
     Indication: HYPERTENSION
     Route: 048
     Dates: start: 20111102
  44. MAGNESIUM SULFATE. [Concomitant]
     Active Substance: MAGNESIUM SULFATE
     Indication: HYPOMAGNESAEMIA
     Route: 042
     Dates: start: 20120903, end: 20120903
  45. ZOFRAN [Concomitant]
     Active Substance: ONDANSETRON HYDROCHLORIDE
     Route: 048
     Dates: start: 20150621, end: 20150621
  46. ASPIRIN. [Concomitant]
     Active Substance: ASPIRIN
     Route: 048
     Dates: start: 20150621, end: 20150621
  47. LISINOPRIL. [Suspect]
     Active Substance: LISINOPRIL
     Indication: HYPERTENSION
     Route: 048
     Dates: start: 20111102, end: 20150629
  48. DIPRIVAN [Concomitant]
     Active Substance: PROPOFOL
     Route: 042
     Dates: start: 20131119, end: 20131119
  49. PREDNISONE. [Concomitant]
     Active Substance: PREDNISONE
     Indication: RHEUMATOID ARTHRITIS
     Route: 048
     Dates: start: 20120518, end: 20120717
  50. PREDNISONE. [Concomitant]
     Active Substance: PREDNISONE
     Route: 048
     Dates: start: 20120201, end: 20120512
  51. PREDNISONE. [Concomitant]
     Active Substance: PREDNISONE
     Route: 048
     Dates: start: 20120815, end: 20130604
  52. PREDNISONE. [Concomitant]
     Active Substance: PREDNISONE
     Dosage: SINGLE DOSE
     Route: 048
     Dates: start: 20140801, end: 20140801
  53. PREDNISONE. [Concomitant]
     Active Substance: PREDNISONE
     Dosage: SINGLE DOSE
     Route: 048
     Dates: start: 20150727, end: 20150727
  54. METROGEL [Concomitant]
     Active Substance: METRONIDAZOLE
     Indication: SEBORRHOEIC DERMATITIS
     Route: 061
     Dates: start: 20130426, end: 20130612
  55. ZOFRAN [Concomitant]
     Active Substance: ONDANSETRON HYDROCHLORIDE
     Route: 042
     Dates: start: 20140107, end: 20140107
  56. HEPARIN [Concomitant]
     Active Substance: HEPARIN SODIUM
     Route: 042
     Dates: start: 20140107, end: 20140108
  57. AMARYL [Concomitant]
     Active Substance: GLIMEPIRIDE
     Route: 048
     Dates: start: 20150324
  58. REGLAN [Concomitant]
     Active Substance: METOCLOPRAMIDE HYDROCHLORIDE
     Route: 048
     Dates: start: 20121004, end: 20131024
  59. PREDNISONE. [Concomitant]
     Active Substance: PREDNISONE
     Dosage: SINGLE DOSE
     Route: 048
     Dates: start: 20140803, end: 20140803
  60. PREDNISONE. [Concomitant]
     Active Substance: PREDNISONE
     Dosage: SINGLE DOSE
     Route: 048
     Dates: start: 20150726, end: 20150726
  61. PRAVASTATIN [Concomitant]
     Active Substance: PRAVASTATIN\PRAVASTATIN SODIUM
     Indication: HYPERLIPIDAEMIA
     Route: 048
     Dates: start: 20130717, end: 20130926
  62. VERSED (INJ) [Concomitant]
     Route: 042
     Dates: start: 20131119, end: 20131119

REACTIONS (7)
  - Rash [Recovered/Resolved]
  - Dehydration [Recovered/Resolved]
  - Dehydration [Recovered/Resolved]
  - Hypotension [Recovered/Resolved]
  - Leukocytosis [Recovered/Resolved]
  - Pyrexia [Recovered/Resolved]
  - Gastritis [Recovered/Resolved]

NARRATIVE: CASE EVENT DATE: 20130912
